FAERS Safety Report 20575307 (Version 9)
Quarter: 2024Q3

REPORT INFORMATION
  Report Type: Spontaneous
  Country: US (occurrence: US)
  Receive Date: 20220310
  Receipt Date: 20240912
  Transmission Date: 20241017
  Serious: Yes (Disabling, Other)
  Sender: ORGANON
  Company Number: US-ORGANON-O2203USA000915

PATIENT
  Sex: Female
  Weight: 95.9 kg

DRUGS (8)
  1. SINGULAIR [Suspect]
     Active Substance: MONTELUKAST SODIUM
     Indication: Asthma
     Dosage: 1 TABLET EACH NIGHT, 30 DAYS, 11 REFILLS
     Route: 048
     Dates: start: 201502
  2. SINGULAIR [Suspect]
     Active Substance: MONTELUKAST SODIUM
     Indication: Rhinitis allergic
  3. SINGULAIR [Suspect]
     Active Substance: MONTELUKAST SODIUM
     Indication: Asthma
     Dosage: UNK; REPORTED AS UNTILL LAST FEBRAURY
     Route: 048
     Dates: end: 202302
  4. SINGULAIR [Suspect]
     Active Substance: MONTELUKAST SODIUM
     Indication: Rhinitis allergic
     Dosage: 1 TABLET EVERY NIGHT (QHS) FOR 30 DAYS, PRESCRIBED AS NEEDED (PRN))
     Route: 048
  5. MELATONIN [Concomitant]
     Active Substance: MELATONIN
     Indication: Sleep apnoea syndrome
     Dosage: UNK
  6. FLOVENT [Concomitant]
     Active Substance: FLUTICASONE PROPIONATE
     Indication: Asthma
     Dosage: UNK; CHANGED FROM 110 TO 44
  7. FLOVENT [Concomitant]
     Active Substance: FLUTICASONE PROPIONATE
     Indication: Rhinitis allergic
     Dosage: 2 PUFFS WITH SPACER TWO TIMES PER DAY, 30 DAYS, 3 REFILLS (110 MCG)
  8. FLOVENT [Concomitant]
     Active Substance: FLUTICASONE PROPIONATE
     Dosage: 2 PUFFS 2 TIMES PER DAY AS PRESCRIBED, (FLOVENT 44)

REACTIONS (20)
  - Neuropsychological symptoms [Not Recovered/Not Resolved]
  - Amnesia [Not Recovered/Not Resolved]
  - Bipolar disorder [Not Recovered/Not Resolved]
  - Aggression [Not Recovered/Not Resolved]
  - Suicidal ideation [Not Recovered/Not Resolved]
  - Self-injurious ideation [Unknown]
  - Impulsive behaviour [Unknown]
  - Reading disorder [Unknown]
  - Anger [Unknown]
  - Memory impairment [Unknown]
  - Adverse event [Unknown]
  - Mood swings [Unknown]
  - Disturbance in attention [Unknown]
  - Anxiety [Unknown]
  - Personality change [Not Recovered/Not Resolved]
  - Depression [Unknown]
  - Obstructive sleep apnoea syndrome [Unknown]
  - Tonsillar hypertrophy [Unknown]
  - Snoring [Unknown]
  - Overweight [Unknown]

NARRATIVE: CASE EVENT DATE: 20150101
